FAERS Safety Report 26158201 (Version 1)
Quarter: 2025Q4

REPORT INFORMATION
  Report Type: Spontaneous
  Country: US (occurrence: None)
  Receive Date: 20251215
  Receipt Date: 20251215
  Transmission Date: 20260117
  Serious: Yes (Other)
  Sender: FDA-CTU
  Company Number: None

PATIENT
  Age: 20 Year
  Sex: Female

DRUGS (2)
  1. COSMETICS [Suspect]
     Active Substance: COSMETICS
     Indication: Ingrown eyelash removal
  2. COSMETICS [Suspect]
     Active Substance: COSMETICS

REACTIONS (4)
  - Product advertising issue [None]
  - Application site pain [None]
  - Eye irritation [None]
  - Product label issue [None]

NARRATIVE: CASE EVENT DATE: 20251215
